FAERS Safety Report 7591883-5 (Version None)
Quarter: 2011Q3

REPORT INFORMATION
  Report Type: 
  Country: None (occurrence: None)
  Receive Date: 20110701
  Receipt Date: 20110701
  Transmission Date: 20111222
  Serious: Yes (Other)
  Sender: FDA-Public Use
  Company Number: None

PATIENT
  Sex: Female
  Weight: 95.709 kg

DRUGS (1)
  1. PAROXETINE HCL [Suspect]
     Dosage: 20MG DAILY PO
     Route: 048
     Dates: start: 20110422, end: 20110610

REACTIONS (4)
  - DEPRESSION [None]
  - CONDITION AGGRAVATED [None]
  - SUICIDAL IDEATION [None]
  - PRODUCT SUBSTITUTION ISSUE [None]
